FAERS Safety Report 7369174 (Version 3)
Quarter: 2013Q3

REPORT INFORMATION
  Report Type: Report from Study
  Country: NZ (occurrence: NZ)
  Receive Date: 20100428
  Receipt Date: 20130809
  Transmission Date: 20140515
  Serious: Yes (Other)
  Sender: FDA-Public Use
  Company Number: PHHY2010NZ24478

PATIENT
  Sex: Female

DRUGS (1)
  1. GLIVEC [Suspect]
     Indication: CHRONIC MYELOID LEUKAEMIA
     Dosage: 200 MG, BID
     Route: 048
     Dates: end: 200901

REACTIONS (8)
  - Splenomegaly [Unknown]
  - Drug intolerance [Unknown]
  - Platelet count increased [Recovering/Resolving]
  - Pancytopenia [Unknown]
  - Maternal exposure during pregnancy [Unknown]
  - Upper respiratory tract infection [Unknown]
  - White blood cell count increased [Unknown]
  - Normal newborn [Unknown]
